FAERS Safety Report 7947904-0 (Version None)
Quarter: 2011Q4

REPORT INFORMATION
  Report Type: 
  Country: None (occurrence: None)
  Receive Date: 20111125
  Receipt Date: 20111116
  Transmission Date: 20120403
  Serious: Yes (Hospitalization)
  Sender: FDA-Public Use
  Company Number: JPI-P-018288

PATIENT
  Age: 50 Year
  Sex: Male
  Weight: 91.173 kg

DRUGS (11)
  1. XYREM [Suspect]
     Indication: NARCOLEPSY
     Dosage: (2.25 GM 1ST DOSE / 3 GM 2ND DOSE
     Route: 048
     Dates: start: 20110913, end: 20111114
  2. MULTIVITAMIN WITH IRON [Concomitant]
  3. ACETYLSALICYLIC ACID SRT [Concomitant]
  4. METHYLPHENIDATE [Concomitant]
  5. FLUTICAONSE/SALMETEROL [Concomitant]
  6. FAMOTIDINE [Concomitant]
  7. ALBUTEROL [Concomitant]
  8. PAROXETINE HCL [Concomitant]
  9. OMEPRAZOLE [Concomitant]
  10. SPIRONOLACTONE [Concomitant]
  11. FUROSEMIDE [Concomitant]

REACTIONS (4)
  - CONFUSIONAL STATE [None]
  - MEMORY IMPAIRMENT [None]
  - CONVULSION [None]
  - CEREBROVASCULAR ACCIDENT [None]
